FAERS Safety Report 14756675 (Version 2)
Quarter: 2019Q1

REPORT INFORMATION
  Report Type: Spontaneous
  Country: US (occurrence: US)
  Receive Date: 20180413
  Receipt Date: 20190308
  Transmission Date: 20190417
  Serious: Yes (Other)
  Sender: FDA-Public Use
  Company Number: US-ASTRAZENECA-2018SE45011

PATIENT
  Age: 24373 Day
  Sex: Female

DRUGS (15)
  1. BUMEX [Concomitant]
     Active Substance: BUMETANIDE
  2. AMOXICILLIN. [Concomitant]
     Active Substance: AMOXICILLIN
  3. SPIRONOLACTONE. [Concomitant]
     Active Substance: SPIRONOLACTONE
  4. GLIPIZIDE. [Concomitant]
     Active Substance: GLIPIZIDE
  5. ONGLYZA [Suspect]
     Active Substance: SAXAGLIPTIN HYDROCHLORIDE
     Indication: DIABETES MELLITUS
     Route: 048
     Dates: start: 20110603, end: 20161224
  6. ONGLYZA [Suspect]
     Active Substance: SAXAGLIPTIN HYDROCHLORIDE
     Indication: DIABETES MELLITUS
     Route: 048
     Dates: start: 20171212
  7. METOLAZONE. [Concomitant]
     Active Substance: METOLAZONE
  8. KOMBIGLYZE XR [Suspect]
     Active Substance: METFORMIN HYDROCHLORIDE\SAXAGLIPTIN HYDROCHLORIDE
     Indication: DIABETES MELLITUS
     Route: 048
     Dates: start: 20110603, end: 20161224
  9. CLINDAMYCIN. [Concomitant]
     Active Substance: CLINDAMYCIN
  10. CEFUROXIME. [Concomitant]
     Active Substance: CEFUROXIME
  11. ASPIRIN. [Concomitant]
     Active Substance: ASPIRIN
  12. CEFTRIAXONE. [Concomitant]
     Active Substance: CEFTRIAXONE
  13. MELOXICAM. [Concomitant]
     Active Substance: MELOXICAM
  14. ONGLYZA [Suspect]
     Active Substance: SAXAGLIPTIN HYDROCHLORIDE
     Indication: DIABETES MELLITUS
     Route: 048
     Dates: start: 201606, end: 201802
  15. OMEPRAZOLE. [Concomitant]
     Active Substance: OMEPRAZOLE

REACTIONS (4)
  - Cardiac failure [Unknown]
  - Cardiac failure congestive [Unknown]
  - Hypokalaemia [Unknown]
  - Cardiovascular disorder [Unknown]

NARRATIVE: CASE EVENT DATE: 20171211
